FAERS Safety Report 8239747-8 (Version None)
Quarter: 2012Q1

REPORT INFORMATION
  Report Type: 
  Country: None (occurrence: None)
  Receive Date: 20120328
  Receipt Date: 20120320
  Transmission Date: 20120608
  Serious: Yes (Death, Other)
  Sender: FDA-Public Use
  Company Number: IT-JNJFOC-20120311401

PATIENT

DRUGS (12)
  1. DACARBAZINE [Suspect]
     Indication: HODGKIN'S DISEASE
     Route: 065
  2. BLEOMYCIN SULFATE [Suspect]
     Indication: HODGKIN'S DISEASE
     Route: 065
  3. PROCARBAZINE HYDROCHLORIDE [Suspect]
     Indication: HODGKIN'S DISEASE
     Route: 065
  4. DOXORUBICIN HCL [Suspect]
     Indication: HODGKIN'S DISEASE
     Route: 042
  5. EPIRUBICIN HYDROCHLORIDE [Suspect]
     Indication: HODGKIN'S DISEASE
     Route: 065
  6. VINCRISTINE [Suspect]
     Indication: HODGKIN'S DISEASE
     Route: 065
  7. LOMUSTINE [Suspect]
     Indication: HODGKIN'S DISEASE
     Route: 065
  8. VINBLASTINE SULFATE [Suspect]
     Indication: HODGKIN'S DISEASE
     Route: 065
  9. VINDESINE [Suspect]
     Indication: HODGKIN'S DISEASE
     Route: 065
  10. MECHLORETHAMINE [Suspect]
     Indication: HODGKIN'S DISEASE
     Route: 065
  11. ETOPOSIDE [Suspect]
     Indication: HODGKIN'S DISEASE
     Route: 065
  12. PREDNISONE TAB [Suspect]
     Indication: HODGKIN'S DISEASE
     Route: 065

REACTIONS (7)
  - DEATH [None]
  - PULMONARY EMBOLISM [None]
  - LYMPHOMA [None]
  - HODGKIN'S DISEASE RECURRENT [None]
  - HODGKIN'S DISEASE [None]
  - TREATMENT FAILURE [None]
  - LUNG DISORDER [None]
